FAERS Safety Report 10966899 (Version 3)
Quarter: 2015Q2

REPORT INFORMATION
  Report Type: Report from Study
  Country: CA (occurrence: CA)
  Receive Date: 20150330
  Receipt Date: 20150630
  Transmission Date: 20150821
  Serious: Yes (Other)
  Sender: FDA-Public Use
  Company Number: CA-ABBVIE-15K-028-1365237-00

PATIENT
  Age: 72 Year
  Sex: Female

DRUGS (2)
  1. HUMIRA [Suspect]
     Active Substance: ADALIMUMAB
     Indication: RHEUMATOID ARTHRITIS
     Route: 058
     Dates: end: 20150224
  2. PREDNISONE. [Suspect]
     Active Substance: PREDNISONE
     Indication: SKIN LESION
     Route: 048
     Dates: start: 2015

REACTIONS (10)
  - Skin ulcer [Recovering/Resolving]
  - Skin lesion [Not Recovered/Not Resolved]
  - Wound dehiscence [Not Recovered/Not Resolved]
  - Pyoderma [Recovering/Resolving]
  - Cushingoid [Not Recovered/Not Resolved]
  - Furuncle [Not Recovered/Not Resolved]
  - Depression [Not Recovered/Not Resolved]
  - Wound haemorrhage [Not Recovered/Not Resolved]
  - Systemic lupus erythematosus [Not Recovered/Not Resolved]
  - Oedema peripheral [Not Recovered/Not Resolved]

NARRATIVE: CASE EVENT DATE: 2014
